FAERS Safety Report 7612753-X (Version None)
Quarter: 2011Q2

REPORT INFORMATION
  Report Type: 
  Country: None (occurrence: None)
  Receive Date: 20110627
  Receipt Date: 20110622
  Transmission Date: 20111010
  Serious: Yes (Other)
  Sender: FDA-Public Use
  Company Number: AECAN201100123

PATIENT
  Age: 49 Year
  Sex: Female

DRUGS (1)
  1. ALBUMIN (HUMAN) [Suspect]
     Indication: PRODUCT USED FOR UNKNOWN INDICATION
     Dosage: 100 ML; IV
     Route: 042
     Dates: start: 19960605, end: 19960605

REACTIONS (2)
  - HEPATITIS C [None]
  - TRANSMISSION OF AN INFECTIOUS AGENT VIA A MEDICINAL PRODUCT [None]
